FAERS Safety Report 4880745-X (Version None)
Quarter: 2006Q1

REPORT INFORMATION
  Report Type: 
  Country: None (occurrence: None)
  Receive Date: 20060111
  Receipt Date: 20051014
  Transmission Date: 20060701
  Serious: No
  Sender: FDA-Public Use
  Company Number: 2005S1000226

PATIENT
  Age: 51 Year
  Weight: 170 kg

DRUGS (4)
  1. CUBICIN [Suspect]
     Indication: CELLULITIS ENTEROCOCCAL
     Dosage: 1 GM;Q24H;IV
     Route: 042
  2. ATENOLOL [Concomitant]
  3. HYDROCHLOROTHIAZIDE [Concomitant]
  4. VANCOMYCIN [Concomitant]

REACTIONS (2)
  - BLOOD CREATINE PHOSPHOKINASE INCREASED [None]
  - MYALGIA [None]
